FAERS Safety Report 7657238-X (Version None)
Quarter: 2011Q3

REPORT INFORMATION
  Report Type: 
  Country: None (occurrence: None)
  Receive Date: 20110804
  Receipt Date: 20110721
  Transmission Date: 20111222
  Serious: Yes (Other)
  Sender: FDA-Public Use
  Company Number: PHHY2011BR66064

PATIENT
  Sex: Female

DRUGS (2)
  1. INSULIN [Concomitant]
     Dosage: 12 U, UNK
  2. DIOVAN [Suspect]
     Dosage: 160 MG, UNK

REACTIONS (5)
  - HYPOGLYCAEMIA [None]
  - ASTHENIA [None]
  - DIZZINESS [None]
  - BLOOD GLUCOSE INCREASED [None]
  - TREMOR [None]
